FAERS Safety Report 7244361-7 (Version None)
Quarter: 2011Q1

REPORT INFORMATION
  Report Type: 
  Country: None (occurrence: None)
  Receive Date: 20110125
  Receipt Date: 20110114
  Transmission Date: 20110831
  Serious: Yes (Other)
  Sender: FDA-Public Use
  Company Number: US-BAXTER-2011BH001604

PATIENT

DRUGS (3)
  1. VINCRISTINE SULFATE [Suspect]
     Indication: NEUROBLASTOMA
     Route: 065
  2. CPT-11 [Suspect]
     Indication: NEUROBLASTOMA
     Route: 065
  3. CYCLOPHOSPHAMIDE [Suspect]
     Indication: NEUROBLASTOMA
     Route: 065

REACTIONS (3)
  - INFECTION [None]
  - HAEMOLYTIC URAEMIC SYNDROME [None]
  - ACUTE RESPIRATORY DISTRESS SYNDROME [None]
